FAERS Safety Report 25116134 (Version 1)
Quarter: 2025Q1

REPORT INFORMATION
  Report Type: Spontaneous
  Country: US (occurrence: US)
  Receive Date: 20250325
  Receipt Date: 20250325
  Transmission Date: 20250409
  Serious: No
  Sender: CIPLA
  Company Number: US-CIPLA LTD.-2025US03207

PATIENT

DRUGS (6)
  1. LANREOTIDE ACETATE [Suspect]
     Active Substance: LANREOTIDE ACETATE
     Indication: Diarrhoea
     Route: 065
     Dates: start: 20250304
  2. OPIUM TINCTURE [Concomitant]
     Active Substance: MORPHINE
     Indication: Diarrhoea
     Dosage: 0.8 MILLILITER, QID (0.8ML/4 TIMES A DAY, FOR 2 YEARS)
     Route: 065
     Dates: start: 2023
  3. AIMOVIG [Concomitant]
     Active Substance: ERENUMAB-AOOE
     Indication: Migraine
     Route: 065
     Dates: start: 2023
  4. IRON [Concomitant]
     Active Substance: IRON
     Indication: Haemorrhage
     Route: 065
     Dates: start: 2005
  5. KLONOPIN [Concomitant]
     Active Substance: CLONAZEPAM
     Indication: Anxiety
     Dosage: 0.5 MILLILITER, QD AND (0.5MG/ONCE A DAY, IT IS 1MG, 4 YEARS)
     Route: 065
     Dates: start: 2021
  6. DULOXETINE [Concomitant]
     Active Substance: DULOXETINE
     Indication: Depression
     Dosage: 120 MILLIGRAM, QD (120MG/ONCE A DAY, 2 YEARS)
     Route: 065
     Dates: start: 2023

REACTIONS (3)
  - Product dose omission issue [Unknown]
  - Off label use [Unknown]
  - Product packaging issue [Unknown]

NARRATIVE: CASE EVENT DATE: 20250301
